FAERS Safety Report 6241039-3 (Version None)
Quarter: 2009Q2

REPORT INFORMATION
  Report Type: 
  Country: None (occurrence: None)
  Receive Date: 20090619
  Receipt Date: 20090619
  Transmission Date: 20091009
  Serious: No
  Sender: FDA-Public Use
  Company Number: None

PATIENT
  Sex: Male

DRUGS (2)
  1. GENERIC DEPAKOTE EC [Suspect]
     Indication: EPILEPSY
     Dosage: 500 MG TABS. 2 TABS THREE TIMES DAILY PO
     Route: 048
     Dates: start: 20081201
  2. GENERIC DEPAKOTE EC [Suspect]
     Indication: EPILEPSY
     Dosage: 500 MG TABS. 2 TABS THREE TIMES DAILY PO
     Route: 048
     Dates: start: 20090501

REACTIONS (3)
  - ANTICONVULSANT DRUG LEVEL BELOW THERAPEUTIC [None]
  - CONVULSION [None]
  - PRODUCT SUBSTITUTION ISSUE [None]
